FAERS Safety Report 11448832 (Version 2)
Quarter: 2015Q4

REPORT INFORMATION
  Report Type: Spontaneous
  Country: US (occurrence: US)
  Receive Date: 20150902
  Receipt Date: 20151016
  Transmission Date: 20160304
  Serious: No
  Sender: FDA-Public Use
  Company Number: US-GLAXOSMITHKLINE-US2015124739

PATIENT
  Sex: Female

DRUGS (10)
  1. FLECTOR [Concomitant]
     Active Substance: DICLOFENAC EPOLAMINE
  2. TRAMADOL. [Concomitant]
     Active Substance: TRAMADOL
  3. FLUTICASONE NASAL SPRAY [Concomitant]
     Active Substance: FLUTICASONE\FLUTICASONE PROPIONATE
  4. MELOXICAM. [Concomitant]
     Active Substance: MELOXICAM
  5. RANITIDINE [Concomitant]
     Active Substance: RANITIDINE\RANITIDINE HYDROCHLORIDE
  6. ADVAIR DISKUS [Suspect]
     Active Substance: FLUTICASONE PROPIONATE\SALMETEROL XINAFOATE
     Indication: CHRONIC OBSTRUCTIVE PULMONARY DISEASE
     Dosage: 1 PUFF(S), BID
     Route: 055
  7. NOVASTATIN [Concomitant]
  8. SPIRIVA [Concomitant]
     Active Substance: TIOTROPIUM BROMIDE MONOHYDRATE
  9. ALBUTEROL INHALER [Concomitant]
     Active Substance: ALBUTEROL
  10. LIDODERM [Concomitant]
     Active Substance: LIDOCAINE

REACTIONS (2)
  - Product quality issue [Unknown]
  - Dyspnoea [Unknown]
